FAERS Safety Report 13768431 (Version 7)
Quarter: 2018Q4

REPORT INFORMATION
  Report Type: Report from Study
  Country: JP (occurrence: JP)
  Receive Date: 20170719
  Receipt Date: 20181130
  Transmission Date: 20190204
  Serious: Yes (Life-Threatening, Hospitalization, Disabling)
  Sender: FDA-Public Use
  Company Number: JP-ACTELION-A-CH2017-156595

PATIENT
  Age: 30 Year
  Sex: Male

DRUGS (24)
  1. FORTEO [Suspect]
     Active Substance: TERIPARATIDE
     Indication: OSTEOPOROSIS
     Dosage: 600 ?G, QD
     Route: 042
     Dates: start: 201508, end: 20170328
  2. PREDNISOLONE. [Concomitant]
     Active Substance: PREDNISOLONE
  3. NEXIUM [Concomitant]
     Active Substance: ESOMEPRAZOLE MAGNESIUM
  4. GRACEPTOR [Concomitant]
     Active Substance: TACROLIMUS
  5. LASIX [Concomitant]
     Active Substance: FUROSEMIDE
  6. FEBURIC [Concomitant]
     Active Substance: FEBUXOSTAT
  7. PROMAC [Concomitant]
     Active Substance: NITROFURANTOIN
     Indication: OSTEOPOROSIS
     Dosage: 0.75 MG, QD
     Route: 048
     Dates: start: 20161007, end: 20170328
  8. CERTICAN [Concomitant]
     Active Substance: EVEROLIMUS
  9. BAKTAR [Suspect]
     Active Substance: SULFAMETHOXAZOLE\TRIMETHOPRIM
     Dosage: 1 DF, QD
     Route: 048
     Dates: start: 20170713
  10. ASPARA-CA [Suspect]
     Active Substance: CALCIUM ASPARTATE
     Indication: OSTEOPOROSIS
     Dosage: 200 MG, BID
     Route: 048
     Dates: start: 20150807, end: 20170328
  11. REVATIO [Concomitant]
     Active Substance: SILDENAFIL CITRATE
  12. OPSUMIT [Suspect]
     Active Substance: MACITENTAN
     Indication: PULMONARY ARTERIAL HYPERTENSION
     Dosage: 10 MG, QD
     Route: 048
     Dates: start: 20160913
  13. BAKTAR [Suspect]
     Active Substance: SULFAMETHOXAZOLE\TRIMETHOPRIM
     Indication: ANTIVIRAL PROPHYLAXIS
     Dosage: UNK
     Route: 048
     Dates: start: 20160902, end: 20161007
  14. EDIROL [Suspect]
     Active Substance: ELDECALCITOL
     Indication: OSTEOPOROSIS
     Dosage: 0.75 ?G, QD
     Route: 048
     Dates: start: 20161007, end: 20170328
  15. CELLCEPT [Concomitant]
     Active Substance: MYCOPHENOLATE MOFETIL\MYCOPHENOLATE MOFETIL HYDROCHLORIDE
  16. SAMSCA [Concomitant]
     Active Substance: TOLVAPTAN
  17. LOXONIN [Concomitant]
     Active Substance: LOXOPROFEN SODIUM
  18. LIVACT [Concomitant]
     Active Substance: AMINO ACIDS
  19. URSO [Concomitant]
     Active Substance: URSODIOL
  20. PROGRAF [Concomitant]
     Active Substance: TACROLIMUS\TACROLIMUS ANHYDROUS
  21. ALDACTONE A [Concomitant]
     Active Substance: SPIRONOLACTONE
  22. MONILAC [Concomitant]
     Active Substance: LACTULOSE
  23. AMINOLEBAN EN [Concomitant]
     Active Substance: UNSPECIFIED INGREDIENT
  24. GLAKAY [Concomitant]
     Active Substance: MENATETRENONE

REACTIONS (16)
  - Anaemia [Recovering/Resolving]
  - Pancytopenia [Recovered/Resolved]
  - Hepatic encephalopathy [Recovering/Resolving]
  - Pneumonia [Recovering/Resolving]
  - Umbilical hernia [Recovered/Resolved]
  - Foot fracture [Recovered/Resolved]
  - Suture insertion [Unknown]
  - Blood bilirubin increased [Recovered/Resolved]
  - Hypercalcaemia [Recovering/Resolving]
  - Acute kidney injury [Recovering/Resolving]
  - Dehydration [Recovering/Resolving]
  - Wound [Recovered/Resolved]
  - Splint application [Unknown]
  - Liver transplant [Unknown]
  - Hernia repair [Unknown]
  - Renal impairment [Recovered/Resolved]

NARRATIVE: CASE EVENT DATE: 20161007
